FAERS Safety Report 19162909 (Version 5)
Quarter: 2023Q4

REPORT INFORMATION
  Report Type: Spontaneous
  Country: US (occurrence: US)
  Receive Date: 20210421
  Receipt Date: 20231015
  Transmission Date: 20240109
  Serious: No
  Sender: FDA-Public Use
  Company Number: US-SA-SAC20210416001355

PATIENT
  Age: 56 Year
  Sex: Female

DRUGS (2)
  1. DUPIXENT [Suspect]
     Active Substance: DUPILUMAB
     Indication: Dermatitis atopic
     Dosage: 300 MG, QOW
     Route: 058
     Dates: start: 20201103
  2. PREDNISONE [Concomitant]
     Active Substance: PREDNISONE
     Dosage: UNK
     Dates: start: 20210524

REACTIONS (8)
  - Hypoaesthesia [Unknown]
  - Pain in extremity [Unknown]
  - Paraesthesia [Unknown]
  - Wound [Unknown]
  - Myalgia [Unknown]
  - Arthralgia [Unknown]
  - Rash [Unknown]
  - Drug ineffective [Unknown]
